FAERS Safety Report 9680289 (Version 1)
Quarter: 2013Q4

REPORT INFORMATION
  Report Type: Spontaneous
  Country: GB (occurrence: GB)
  Receive Date: 20131111
  Receipt Date: 20131111
  Transmission Date: 20140711
  Serious: Yes (Other)
  Sender: FDA-Public Use
  Company Number: GB-BRISTOL-MYERS SQUIBB COMPANY-19790450

PATIENT
  Age: 75 Year
  Sex: Male

DRUGS (1)
  1. METFORMIN HCL [Suspect]

REACTIONS (1)
  - Myocardial infarction [Unknown]
